FAERS Safety Report 9611047 (Version 2)
Quarter: 2013Q4

REPORT INFORMATION
  Report Type: Spontaneous
  Country: US (occurrence: US)
  Receive Date: 20131009
  Receipt Date: 20131021
  Transmission Date: 20140711
  Serious: Yes (Hospitalization, Other)
  Sender: FDA-Public Use
  Company Number: US-GILEAD-2013-0085045

PATIENT
  Sex: Female

DRUGS (4)
  1. LETAIRIS [Suspect]
     Indication: PULMONARY HYPERTENSION
     Dosage: 10 MG, QD
     Route: 048
     Dates: start: 201012
  2. LETAIRIS [Suspect]
     Indication: SICKLE CELL ANAEMIA
  3. SILDENAFIL CITRATE [Concomitant]
  4. WARFARIN [Concomitant]

REACTIONS (2)
  - Sickle cell anaemia [Unknown]
  - Dysphagia [Unknown]
